FAERS Safety Report 20674167 (Version 1)
Quarter: 2022Q2

REPORT INFORMATION
  Report Type: Spontaneous
  Country: FR (occurrence: FR)
  Receive Date: 20220405
  Receipt Date: 20220405
  Transmission Date: 20220721
  Serious: Yes (Other)
  Sender: FDA-Public Use
  Company Number: None

PATIENT
  Age: 62 Year
  Sex: Female

DRUGS (2)
  1. ADRIAMYCIN [Suspect]
     Active Substance: DOXORUBICIN HYDROCHLORIDE
     Indication: Breast cancer
     Dosage: 300 MG/M2
     Dates: start: 20211027, end: 20211208
  2. DURVALUMAB [Suspect]
     Active Substance: DURVALUMAB
     Indication: Breast cancer
     Dosage: UNK
     Dates: start: 20210804

REACTIONS (1)
  - Cardiac disorder [Recovering/Resolving]

NARRATIVE: CASE EVENT DATE: 20211201
